FAERS Safety Report 17510061 (Version 2)
Quarter: 2020Q1

REPORT INFORMATION
  Report Type: Spontaneous
  Country: US (occurrence: US)
  Receive Date: 20200306
  Receipt Date: 20200316
  Transmission Date: 20200409
  Serious: Yes (Other)
  Sender: FDA-Public Use
  Company Number: US-PFIZER INC-2020098630

PATIENT
  Age: 71 Year
  Sex: Female

DRUGS (3)
  1. XELJANZ [Suspect]
     Active Substance: TOFACITINIB CITRATE
     Indication: RHEUMATOID ARTHRITIS
     Dosage: 5 MG, 2X/DAY
     Route: 048
     Dates: start: 20190515
  2. VIDAZA [Concomitant]
     Active Substance: AZACITIDINE
     Dosage: (ONCE A MONTH FOR 5 DAYS IN A ROW)
  3. ZOFRAN [Concomitant]
     Active Substance: ONDANSETRON HYDROCHLORIDE
     Dosage: UNK

REACTIONS (4)
  - Haemoglobin abnormal [Unknown]
  - Raynaud^s phenomenon [Unknown]
  - Headache [Unknown]
  - Myelodysplastic syndrome [Unknown]
